FAERS Safety Report 18278810 (Version 9)
Quarter: 2021Q3

REPORT INFORMATION
  Report Type: Spontaneous
  Country: US (occurrence: US)
  Receive Date: 20200917
  Receipt Date: 20210707
  Transmission Date: 20211014
  Serious: Yes (Hospitalization, Other)
  Sender: FDA-Public Use
  Company Number: US-MALLINCKRODT-T202001738

PATIENT
  Age: 77 Year
  Sex: Female
  Weight: 114 kg

DRUGS (3)
  1. H.P. ACTHAR [Suspect]
     Active Substance: CORTICOTROPIN
     Dosage: UNKNOWN (HALF DOSE)
     Route: 065
     Dates: start: 20210215, end: 20210225
  2. H.P. ACTHAR [Suspect]
     Active Substance: CORTICOTROPIN
     Indication: RENAL DISORDER
     Dosage: 80 UNITS, TWO TIMES A WEEK
     Route: 058
     Dates: start: 201912, end: 202012
  3. H.P. ACTHAR [Suspect]
     Active Substance: CORTICOTROPIN
     Indication: SARCOIDOSIS
     Dosage: UNK
     Route: 065

REACTIONS (18)
  - Lymphoedema [Not Recovered/Not Resolved]
  - Product storage error [Unknown]
  - Skin ulcer [Recovering/Resolving]
  - Spinal compression fracture [Unknown]
  - Gait disturbance [Not Recovered/Not Resolved]
  - Skin graft [Unknown]
  - Alopecia [Not Recovered/Not Resolved]
  - Memory impairment [Unknown]
  - Intervertebral disc protrusion [Not Recovered/Not Resolved]
  - Nodule [Unknown]
  - Cellulitis [Not Recovered/Not Resolved]
  - Blister [Unknown]
  - Device issue [Unknown]
  - Muscle spasms [Not Recovered/Not Resolved]
  - Feeling abnormal [Recovering/Resolving]
  - Underdose [Unknown]
  - Fluid retention [Not Recovered/Not Resolved]
  - Product dose omission in error [Recovered/Resolved]

NARRATIVE: CASE EVENT DATE: 2020
